FAERS Safety Report 24613144 (Version 3)
Quarter: 2025Q1

REPORT INFORMATION
  Report Type: Spontaneous
  Country: SE (occurrence: SE)
  Receive Date: 20241113
  Receipt Date: 20250121
  Transmission Date: 20250409
  Serious: Yes (Hospitalization)
  Sender: NOVARTIS
  Company Number: SE-002147023-NVSC2024SE218048

PATIENT
  Age: 7 Year
  Sex: Female

DRUGS (2)
  1. ILARIS [Suspect]
     Active Substance: CANAKINUMAB
     Indication: Still^s disease
     Route: 065
     Dates: start: 20240809
  2. ILARIS [Suspect]
     Active Substance: CANAKINUMAB
     Route: 065
     Dates: start: 20241025

REACTIONS (4)
  - Pyrexia [Not Recovered/Not Resolved]
  - C-reactive protein increased [Unknown]
  - Interleukin level increased [Unknown]
  - Drug ineffective [Not Recovered/Not Resolved]

NARRATIVE: CASE EVENT DATE: 20241001
